FAERS Safety Report 14509020 (Version 1)
Quarter: 2018Q1

REPORT INFORMATION
  Report Type: Spontaneous
  Country: US (occurrence: US)
  Receive Date: 20180207
  Receipt Date: 20180207
  Transmission Date: 20180509
  Serious: Yes (Hospitalization)
  Sender: FDA-Public Use
  Company Number: None

PATIENT
  Age: 49 Year
  Sex: Male

DRUGS (1)
  1. FERRIC NA GLUCONATE [Suspect]
     Active Substance: SODIUM FERRIC GLUCONATE COMPLEX
     Indication: ANAEMIA
     Route: 042
     Dates: start: 20180205, end: 20180205

REACTIONS (8)
  - Swelling face [None]
  - Rash [None]
  - Anaphylactic reaction [None]
  - Nausea [None]
  - Vomiting [None]
  - Mouth swelling [None]
  - Flushing [None]
  - Diarrhoea [None]

NARRATIVE: CASE EVENT DATE: 20180205
